FAERS Safety Report 18042831 (Version 1)
Quarter: 2020Q3

REPORT INFORMATION
  Report Type: Spontaneous
  Country: US (occurrence: US)
  Receive Date: 20200717
  Receipt Date: 20200717
  Transmission Date: 20201103
  Serious: Yes (Other)
  Sender: FDA-Public Use
  Company Number: None

PATIENT
  Age: 61 Week
  Sex: Male
  Weight: 63.6 kg

DRUGS (9)
  1. DIPHENHYDRAMINE 25 MG IV X 1 STAT [Concomitant]
     Dates: start: 20200628, end: 20200628
  2. ZINC SULFATE 220 MG PO BID [Concomitant]
     Dates: start: 20200627, end: 20200716
  3. AZITHROMYCIN 500 MG IV X 1 [Concomitant]
     Dates: start: 20200627, end: 20200627
  4. REMDESIVIR. [Suspect]
     Active Substance: REMDESIVIR
     Indication: COVID-19 PNEUMONIA
     Route: 042
     Dates: start: 20200628, end: 20200628
  5. AZITHROMYCIN 500 MG PO ONCE DAILY [Concomitant]
     Dates: start: 20200628, end: 20200702
  6. ASCORBIC ACID 1000 MG PO Q12H [Concomitant]
     Dates: start: 20200627, end: 20200717
  7. CEFTRIAXONE 1 GM IV ONCE DAILY [Concomitant]
     Dates: start: 20200627, end: 20200630
  8. ENOXAPARIN 60 MG SQ Q12HRS [Concomitant]
     Dates: start: 20200627, end: 20200717
  9. METHYLPREDNISOLONE 60 MG IV Q6HR [Concomitant]
     Dates: start: 20200628, end: 20200705

REACTIONS (4)
  - Dyspnoea [None]
  - Rash [None]
  - Hypersensitivity [None]
  - Swelling [None]

NARRATIVE: CASE EVENT DATE: 20200628
